FAERS Safety Report 9323490 (Version 1)
Quarter: 2013Q2

REPORT INFORMATION
  Report Type: Spontaneous
  Country: US (occurrence: US)
  Receive Date: 20130603
  Receipt Date: 20130603
  Transmission Date: 20140414
  Serious: No
  Sender: FDA-Public Use
  Company Number: US-PFIZER INC-2013164339

PATIENT
  Sex: Female

DRUGS (2)
  1. XALATAN [Suspect]
     Indication: INTRAOCULAR PRESSURE TEST ABNORMAL
     Dosage: UNK
  2. AZOPT [Suspect]
     Dosage: UNK

REACTIONS (2)
  - Asthenopia [Unknown]
  - Eye irritation [Unknown]
